FAERS Safety Report 7153315-0 (Version None)
Quarter: 2010Q4

REPORT INFORMATION
  Report Type: 
  Country: None (occurrence: None)
  Receive Date: 20101213
  Receipt Date: 20101206
  Transmission Date: 20110411
  Serious: Yes (Other)
  Sender: FDA-Public Use
  Company Number: CA-ROCHE-746550

PATIENT
  Sex: Male

DRUGS (5)
  1. BEVACIZUMAB [Suspect]
     Indication: GLIOBLASTOMA
     Route: 042
     Dates: start: 20101115
  2. DILANTIN [Concomitant]
  3. KEPPRA [Concomitant]
  4. CIPRALEX [Concomitant]
     Dosage: DRUG REPORTED AS CIRPROLEX
  5. DEXAMETHASONE [Concomitant]

REACTIONS (2)
  - BRAIN OEDEMA [None]
  - HYPERTENSION [None]
